FAERS Safety Report 5692017-4 (Version None)
Quarter: 2008Q2

REPORT INFORMATION
  Report Type: 
  Country: None (occurrence: None)
  Receive Date: 20080402
  Receipt Date: 20080328
  Transmission Date: 20081010
  Serious: Yes (Death)
  Sender: FDA-Public Use
  Company Number: US-MERCK-0803USA04781

PATIENT
  Age: 14 Year
  Sex: Male

DRUGS (5)
  1. SINGULAIR [Suspect]
     Indication: HYPERSENSITIVITY
     Route: 048
     Dates: end: 20080120
  2. SINGULAIR [Suspect]
     Indication: ASTHMA
     Route: 048
     Dates: end: 20080120
  3. [THERAPY UNSPECIFIED] [Concomitant]
  4. SINGULAIR [Concomitant]
     Route: 048
     Dates: start: 20030721
  5. SINGULAIR [Concomitant]
     Route: 048
     Dates: start: 20030721

REACTIONS (2)
  - COMPLETED SUICIDE [None]
  - OVERDOSE [None]
